FAERS Safety Report 23196624 (Version 1)
Quarter: 2023Q4

REPORT INFORMATION
  Report Type: Spontaneous
  Country: US (occurrence: US)
  Receive Date: 20231117
  Receipt Date: 20231117
  Transmission Date: 20240110
  Serious: No
  Sender: FDA-Public Use
  Company Number: US-BRISTOL-MYERS SQUIBB COMPANY-2023-165999

PATIENT
  Age: 47 Year
  Sex: Female

DRUGS (2)
  1. REVLIMID [Suspect]
     Active Substance: LENALIDOMIDE
     Indication: Plasma cell myeloma
     Dosage: DOSE : 25MG;     FREQ : 21DAYS ON AND 7 DAYS OFF, 14 DAYS ON AND 7 DAYS OFF
     Route: 048
     Dates: start: 20231110
  2. REVLIMID [Suspect]
     Active Substance: LENALIDOMIDE
     Dosage: DOSE : 25MG;     FREQ : 21DAYS ON AND 7 DAYS OFF, 14 DAYS ON AND 7 DAYS OFF
     Route: 048
     Dates: start: 202310

REACTIONS (3)
  - Rash [Not Recovered/Not Resolved]
  - Gastrointestinal disorder [Not Recovered/Not Resolved]
  - Off label use [Unknown]
